FAERS Safety Report 8123140-2 (Version None)
Quarter: 2012Q1

REPORT INFORMATION
  Report Type: 
  Country: None (occurrence: None)
  Receive Date: 20120208
  Receipt Date: 20120201
  Transmission Date: 20120608
  Serious: Yes (Other)
  Sender: FDA-Public Use
  Company Number: US-JNJFOC-20120104912

PATIENT
  Sex: Female
  Weight: 54.43 kg

DRUGS (5)
  1. HYDROCHLOROTHIAZIDE [Concomitant]
     Indication: BLOOD PRESSURE
     Route: 048
  2. XARELTO [Suspect]
     Indication: THROMBOSIS PROPHYLAXIS
     Route: 048
     Dates: start: 20120103
  3. LOSARTAN POTASSIUM [Concomitant]
     Route: 048
  4. CITALOPRAM [Concomitant]
     Route: 048
  5. CRESTOR [Concomitant]
     Indication: BLOOD CHOLESTEROL
     Route: 048

REACTIONS (5)
  - DIZZINESS [None]
  - SYNCOPE [None]
  - MELAENA [None]
  - NAUSEA [None]
  - DECREASED APPETITE [None]
